FAERS Safety Report 6204749-X (Version None)
Quarter: 2009Q2

REPORT INFORMATION
  Report Type: 
  Country: None (occurrence: None)
  Receive Date: 20090527
  Receipt Date: 20090525
  Transmission Date: 20091009
  Serious: Yes (Other)
  Sender: FDA-Public Use
  Company Number: DE-PFIZER INC-2008151071

PATIENT

DRUGS (1)
  1. SOBELIN [Suspect]
     Dosage: UNK
     Dates: start: 20081201

REACTIONS (1)
  - PANCREATITIS ACUTE [None]
